FAERS Safety Report 18287618 (Version 29)
Quarter: 2022Q3

REPORT INFORMATION
  Report Type: Spontaneous
  Country: CA (occurrence: CA)
  Receive Date: 20200921
  Receipt Date: 20220811
  Transmission Date: 20221027
  Serious: Yes (Hospitalization, Other)
  Sender: FDA-Public Use
  Company Number: CA-CELLTRION INC.-2020CA023596

PATIENT

DRUGS (30)
  1. INFLECTRA [Suspect]
     Active Substance: INFLIXIMAB-DYYB
     Indication: Crohn^s disease
     Dosage: 400 MG Q, 0, 2, 6 THEN EVERY 8 WEEKS
     Route: 042
     Dates: start: 20200505, end: 20200616
  2. INFLECTRA [Suspect]
     Active Substance: INFLIXIMAB-DYYB
     Dosage: 400 MG, 0, 2, 6 THEN EVERY 8 WEEKS
     Route: 042
     Dates: start: 20200520
  3. INFLECTRA [Suspect]
     Active Substance: INFLIXIMAB-DYYB
     Dosage: 400 MG, 0, 2, 6 THEN EVERY 8 WEEKS
     Route: 042
     Dates: start: 20200616
  4. INFLECTRA [Suspect]
     Active Substance: INFLIXIMAB-DYYB
     Dosage: 400 MG, 0, 2, 6 THEN EVERY 8 WEEKS
     Route: 042
     Dates: start: 20200810
  5. INFLECTRA [Suspect]
     Active Substance: INFLIXIMAB-DYYB
     Dosage: 400 MG, RE-INDUCTION: 0, 2, 6 THEN EVERY 8 WEEKS
     Route: 042
     Dates: start: 20200810
  6. INFLECTRA [Suspect]
     Active Substance: INFLIXIMAB-DYYB
     Dosage: 400 MG, RE-INDUCTION: 0, 2, 6 THEN EVERY 6 WEEKS
     Route: 042
     Dates: start: 20200810, end: 20201229
  7. INFLECTRA [Suspect]
     Active Substance: INFLIXIMAB-DYYB
     Dosage: 400 MG, 0, 2, 6 THEN EVERY 6 WEEKS (RE-INDUCTION)
     Route: 042
     Dates: start: 20200827
  8. INFLECTRA [Suspect]
     Active Substance: INFLIXIMAB-DYYB
     Dosage: 400 MG, 0, 2, 6 THEN EVERY 6 WEEKS (RE-INDUCTION)
     Route: 042
     Dates: start: 20200827
  9. INFLECTRA [Suspect]
     Active Substance: INFLIXIMAB-DYYB
     Dosage: 400 MG, 0, 2, 6 THEN EVERY 6 WEEKS (RE-INDUCTION)
     Route: 042
     Dates: start: 20200911
  10. INFLECTRA [Suspect]
     Active Substance: INFLIXIMAB-DYYB
     Dosage: 5 MG/KG, EVERY 6 WEEKS
     Route: 042
  11. INFLECTRA [Suspect]
     Active Substance: INFLIXIMAB-DYYB
     Dosage: 400 MG, 0, 2, 6 THEN EVERY 6 WEEKS (RE-INDUCTION)
     Route: 042
     Dates: start: 20201008
  12. INFLECTRA [Suspect]
     Active Substance: INFLIXIMAB-DYYB
     Dosage: 400 MG, 0, 2, 6 THEN EVERY 6 WEEKS (RE-INDUCTION)
     Route: 042
     Dates: start: 20201116
  13. INFLECTRA [Suspect]
     Active Substance: INFLIXIMAB-DYYB
     Dosage: 400 MG, 0, 2, 6 THEN EVERY 6 WEEKS (RE-INDUCTION)
     Route: 042
     Dates: start: 20201229
  14. INFLECTRA [Suspect]
     Active Substance: INFLIXIMAB-DYYB
     Dosage: 400 MG, 0, 2, 6 THEN EVERY 6 WEEKS (RE-INDUCTION)
     Route: 042
     Dates: start: 20210114
  15. INFLECTRA [Suspect]
     Active Substance: INFLIXIMAB-DYYB
     Dosage: 5 MG/KG (400 MG), 0, 2, 6 THEN EVERY 4 WEEKS (RE-INDUCTION)
     Route: 042
     Dates: start: 20210114
  16. INFLECTRA [Suspect]
     Active Substance: INFLIXIMAB-DYYB
     Dosage: 400 MG, 0, 2, 6 THEN EVERY 4 WEEKS (RE-INDUCTION)
     Route: 042
     Dates: start: 20210209
  17. INFLECTRA [Suspect]
     Active Substance: INFLIXIMAB-DYYB
     Dosage: 5 MG/KG, 0, 2, 6 THEN EVERY 4 WEEKS (RE-INDUCTION)
     Route: 042
     Dates: start: 20210310
  18. INFLECTRA [Suspect]
     Active Substance: INFLIXIMAB-DYYB
     Dosage: 400 MG, RE-INDUCTION: 0, 2, 6 THEN EVERY 4 WEEKS
     Route: 042
     Dates: start: 20210531
  19. INFLECTRA [Suspect]
     Active Substance: INFLIXIMAB-DYYB
     Dosage: 400 MG, RE-INDUCTION: 0, 2, 6 THEN EVERY 4 WEEKS
     Route: 042
     Dates: start: 20210724
  20. INFLECTRA [Suspect]
     Active Substance: INFLIXIMAB-DYYB
     Dosage: 400 MG, RE-INDUCTION: 0, 2, 6 THEN EVERY 4 WEEKS
     Route: 042
     Dates: start: 20210823
  21. INFLECTRA [Suspect]
     Active Substance: INFLIXIMAB-DYYB
     Dosage: 400 MG, RE-INDUCTION: 0, 2, 6 THEN EVERY 4 WEEKS
     Route: 042
     Dates: start: 20210920
  22. INFLECTRA [Suspect]
     Active Substance: INFLIXIMAB-DYYB
     Dosage: 400 MG, RE-INDUCTION: 0, 2, 6 THEN EVERY 4 WEEKS
     Route: 042
     Dates: start: 20211115
  23. INFLECTRA [Suspect]
     Active Substance: INFLIXIMAB-DYYB
     Dosage: 400 MG, RE-INDUCTION: 0, 2, 6 THEN EVERY 4 WEEKS
     Route: 042
     Dates: start: 20211213
  24. INFLECTRA [Suspect]
     Active Substance: INFLIXIMAB-DYYB
     Dosage: 400 MG, RE-INDUCTION: 0, 2, 6 THEN EVERY 4 WEEKS
     Route: 042
     Dates: start: 20220124
  25. INFLECTRA [Suspect]
     Active Substance: INFLIXIMAB-DYYB
     Dosage: 400 MG, RE-INDUCTION: 0, 2, 6 THEN EVERY 4 WEEKS
     Route: 042
     Dates: start: 20220225
  26. INFLECTRA [Suspect]
     Active Substance: INFLIXIMAB-DYYB
     Dosage: 400 MG, RE-INDUCTION: 0, 2, 6 THEN EVERY 4 WEEKS
     Route: 042
     Dates: start: 20220325
  27. INFLECTRA [Suspect]
     Active Substance: INFLIXIMAB-DYYB
     Dosage: 400 MG, RE-INDUCTION: 0, 2, 6 THEN EVERY 4 WEEKS
     Route: 042
     Dates: start: 20220505
  28. INFLECTRA [Suspect]
     Active Substance: INFLIXIMAB-DYYB
     Dosage: 400 MG, RE-INDUCTION: 0, 2, 6 THEN EVERY 4 WEEKS
     Route: 042
     Dates: start: 20220602
  29. INFLECTRA [Suspect]
     Active Substance: INFLIXIMAB-DYYB
     Dosage: 400 MG, RE-INDUCTION: 0, 2, 6 THEN EVERY 4 WEEKS
     Route: 042
     Dates: start: 20220630
  30. INFLECTRA [Suspect]
     Active Substance: INFLIXIMAB-DYYB
     Dosage: 400 MG, RE-INDUCTION: 0, 2, 6 THEN EVERY 4 WEEKS
     Route: 042
     Dates: start: 20220729

REACTIONS (25)
  - Cerebrovascular accident [Recovered/Resolved]
  - Weight decreased [Unknown]
  - Therapeutic response shortened [Not Recovered/Not Resolved]
  - Drug level decreased [Unknown]
  - Off label use [Unknown]
  - Off label use [Unknown]
  - Intentional product use issue [Unknown]
  - Inappropriate schedule of product administration [Unknown]
  - Weight increased [Unknown]
  - Visual impairment [Recovered/Resolved]
  - Hypoaesthesia [Recovered/Resolved]
  - Anaemia [Unknown]
  - Heart rate decreased [Unknown]
  - Rash [Unknown]
  - Exposure to SARS-CoV-2 [Unknown]
  - Condition aggravated [Recovering/Resolving]
  - Gingival abscess [Unknown]
  - Malaise [Unknown]
  - Stress [Unknown]
  - Feeling hot [Unknown]
  - Abscess [Unknown]
  - Somnolence [Not Recovered/Not Resolved]
  - Fatigue [Not Recovered/Not Resolved]
  - Palpitations [Not Recovered/Not Resolved]
  - Tooth extraction [Recovering/Resolving]

NARRATIVE: CASE EVENT DATE: 20200601
